FAERS Safety Report 6202562-0 (Version None)
Quarter: 2009Q2

REPORT INFORMATION
  Report Type: 
  Country: None (occurrence: None)
  Receive Date: 20090521
  Receipt Date: 20090521
  Transmission Date: 20091009
  Serious: Yes (Life-Threatening, Hospitalization)
  Sender: FDA-Public Use
  Company Number: None

PATIENT
  Age: 54 Year
  Sex: Female
  Weight: 102.5129 kg

DRUGS (1)
  1. BEXTRA [Suspect]
     Indication: ARTHRALGIA
     Dosage: 20MG 1-2 TABLETS DAILY
     Dates: start: 20040615, end: 20050104

REACTIONS (14)
  - ASTHENIA [None]
  - BLOOD PRESSURE ABNORMAL [None]
  - CHEST DISCOMFORT [None]
  - CHEST PAIN [None]
  - DECREASED APPETITE [None]
  - DIARRHOEA [None]
  - DIZZINESS [None]
  - DYSPNOEA [None]
  - INSOMNIA [None]
  - MUSCLE INJURY [None]
  - MYOCARDIAL INFARCTION [None]
  - NAUSEA [None]
  - PALPITATIONS [None]
  - POST-TRAUMATIC STRESS DISORDER [None]
